FAERS Safety Report 7563578-5 (Version None)
Quarter: 2011Q2

REPORT INFORMATION
  Report Type: 
  Country: None (occurrence: None)
  Receive Date: 20110622
  Receipt Date: 20110616
  Transmission Date: 20111010
  Serious: Yes (Other)
  Sender: FDA-Public Use
  Company Number: US-ABBOTT-11P-163-0732739-00

PATIENT
  Age: 77 Year
  Sex: Female

DRUGS (2)
  1. NEURONTIN [Concomitant]
     Indication: NEUROPATHY PERIPHERAL
  2. HUMIRA [Suspect]
     Indication: CROHN'S DISEASE
     Dates: start: 20100831

REACTIONS (2)
  - ANAL FISTULA [None]
  - RASH PRURITIC [None]
